FAERS Safety Report 14148678 (Version 1)
Quarter: 2017Q4

REPORT INFORMATION
  Report Type: Spontaneous
  Country: US (occurrence: US)
  Receive Date: 20171101
  Receipt Date: 20171101
  Transmission Date: 20180321
  Serious: Yes (Other)
  Sender: FDA-Public Use
  Company Number: US-MYLANLABS-2017M1068455

PATIENT
  Age: 17 Year
  Sex: Female

DRUGS (1)
  1. ECONTRA EZ [Suspect]
     Active Substance: LEVONORGESTREL
     Indication: PRODUCT USED FOR UNKNOWN INDICATION
     Dosage: TOOK 4 PILLS
     Dates: start: 20170814, end: 20170825

REACTIONS (6)
  - Asthenia [Unknown]
  - Haemorrhage [Unknown]
  - Dizziness [Unknown]
  - Headache [Unknown]
  - Overdose [Recovered/Resolved]
  - Nausea [Unknown]

NARRATIVE: CASE EVENT DATE: 20170814
